FAERS Safety Report 5528422-6 (Version None)
Quarter: 2007Q4

REPORT INFORMATION
  Report Type: 
  Country: None (occurrence: None)
  Receive Date: 20071121
  Receipt Date: 20071107
  Transmission Date: 20080405
  Serious: Yes (Other)
  Sender: FDA-Public Use
  Company Number: CIP07002355

PATIENT
  Age: 78 Year
  Sex: Male

DRUGS (15)
  1. DIDRONEL [Suspect]
     Indication: SPINAL FRACTURE
     Dosage: ORAL
     Route: 048
     Dates: start: 20060530, end: 20060612
  2. RISEDRONATE SODIUM [Suspect]
     Indication: SPINAL FRACTURE
     Dosage: ORAL
     Route: 048
     Dates: start: 20060623, end: 20061002
  3. BONALON /01220301/(ALENDRONIC ACID) 5MG [Suspect]
     Indication: SPINAL FRACTURE
     Dosage: 5 MG, ORAL
     Route: 048
     Dates: start: 20070521, end: 20070526
  4. VIT K CAP [Concomitant]
  5. ALFAROL (ALFACALCIDOL) [Concomitant]
  6. DRUG NOS [Concomitant]
  7. SHAKUYAKUKANZOUTOU (HERBAL EXTRACT NOS) [Concomitant]
  8. PREDNISONE [Concomitant]
  9. ENDOXAN /00021101/ (CYCLOPHOSPHAMIDE) [Concomitant]
  10. ISALON (ALDIOXA) [Concomitant]
  11. GASTROM (ECABET MONOSODIUM) [Concomitant]
  12. PERSANTIN [Concomitant]
  13. ZOLPIDEM TARTRATE [Concomitant]
  14. LASIX [Concomitant]
  15. SULFAMETHOXAZOLE + TRIMETHOPRIM [Concomitant]

REACTIONS (6)
  - DENTAL ALVEOLAR ANOMALY [None]
  - IMPAIRED HEALING [None]
  - JAW DISORDER [None]
  - OSTEONECROSIS [None]
  - PRIMARY SEQUESTRUM [None]
  - SPINAL FRACTURE [None]
